FAERS Safety Report 11347208 (Version 2)
Quarter: 2016Q1

REPORT INFORMATION
  Report Type: Spontaneous
  Country: US (occurrence: US)
  Receive Date: 20150803
  Receipt Date: 20160115
  Transmission Date: 20160525
  Serious: Yes (Other)
  Sender: FDA-Public Use
  Company Number: US-ELI_LILLY_AND_COMPANY-US201104002202

PATIENT
  Sex: Male

DRUGS (13)
  1. ZYPREXA [Suspect]
     Active Substance: OLANZAPINE
     Indication: BIPOLAR DISORDER
     Dosage: 5 MG, QD
  2. ZYPREXA [Suspect]
     Active Substance: OLANZAPINE
     Dosage: 10 MG, UNKNOWN
     Route: 065
     Dates: start: 2011, end: 2012
  3. ZYPREXA [Suspect]
     Active Substance: OLANZAPINE
     Dosage: 40 MG, UNKNOWN
     Route: 065
     Dates: start: 201312
  4. ZYPREXA [Suspect]
     Active Substance: OLANZAPINE
     Indication: SCHIZOAFFECTIVE DISORDER
     Dosage: 20 MG, QD
  5. ZYPREXA [Suspect]
     Active Substance: OLANZAPINE
     Dosage: 20 MG, QD
  6. ZYPREXA [Suspect]
     Active Substance: OLANZAPINE
     Dosage: 20 MG, UNKNOWN
     Route: 065
     Dates: start: 2001, end: 2001
  7. ZYPREXA [Suspect]
     Active Substance: OLANZAPINE
     Dosage: 20 MG, UNKNOWN
     Route: 065
     Dates: start: 2010, end: 2011
  8. LITHIUM. [Concomitant]
     Active Substance: LITHIUM
     Dosage: UNK, UNKNOWN
     Route: 065
  9. ZYPREXA [Suspect]
     Active Substance: OLANZAPINE
     Dosage: 10 MG, QD
     Dates: start: 2011
  10. ZYPREXA [Suspect]
     Active Substance: OLANZAPINE
     Dosage: 40 MG, UNKNOWN
     Route: 065
     Dates: start: 201312
  11. LEVOTHYROXINE. [Concomitant]
     Active Substance: LEVOTHYROXINE
     Dosage: UNK, UNKNOWN
     Route: 065
  12. ZYPREXA [Suspect]
     Active Substance: OLANZAPINE
     Dosage: 5 MG, QD
  13. ZYPREXA [Suspect]
     Active Substance: OLANZAPINE
     Dosage: 20 MG, UNKNOWN
     Route: 065
     Dates: start: 2004, end: 2006

REACTIONS (17)
  - Dysphemia [Unknown]
  - Hormone level abnormal [Unknown]
  - CYP2D6 polymorphism [Unknown]
  - Urine analysis abnormal [Unknown]
  - Eczema [Unknown]
  - Vomiting [Unknown]
  - Hypersomnia [Unknown]
  - Mental impairment [Unknown]
  - Renal disorder [Unknown]
  - Disturbance in attention [Unknown]
  - Speech disorder [Unknown]
  - Abnormal behaviour [Unknown]
  - Hypoacusis [Unknown]
  - Liver injury [Unknown]
  - Overdose [Unknown]
  - Memory impairment [Unknown]
  - Thyroid function test abnormal [Unknown]
